FAERS Safety Report 25973910 (Version 1)
Quarter: 2025Q4

REPORT INFORMATION
  Report Type: Spontaneous
  Country: US (occurrence: US)
  Receive Date: 20251029
  Receipt Date: 20251029
  Transmission Date: 20260118
  Serious: Yes (Hospitalization)
  Sender: MYLAN
  Company Number: US-MYLANLABS-2025M1091540

PATIENT
  Age: 18 Year
  Sex: Female

DRUGS (12)
  1. CLOZAPINE [Interacting]
     Active Substance: CLOZAPINE
     Indication: Psychiatric care
     Dosage: 12.5 MILLIGRAM, QD
  2. CLOZAPINE [Interacting]
     Active Substance: CLOZAPINE
     Dosage: 62.5 MILLIGRAM, QD
  3. CLOZAPINE [Interacting]
     Active Substance: CLOZAPINE
     Dosage: 50 MILLIGRAM, QD
  4. CLONIDINE [Suspect]
     Active Substance: CLONIDINE
     Indication: Psychiatric care
     Dosage: 0.1 MILLIGRAM, QW
  5. HALOPERIDOL [Suspect]
     Active Substance: HALOPERIDOL
     Indication: Psychiatric care
     Dosage: 2.5 MILLIGRAM, TID, (THREE TIMES A DAY)
  6. LORAZEPAM [Suspect]
     Active Substance: LORAZEPAM
     Indication: Psychiatric care
     Dosage: 1.5MG EACH MORNING, 1.5MG MIDDAY AND 2MG AT BEDTIME.
  7. ACETYLCYSTEINE [Suspect]
     Active Substance: ACETYLCYSTEINE
     Indication: Psychiatric care
     Dosage: 60 MILLIGRAM, BID
  8. OXCARBAZEPINE [Suspect]
     Active Substance: OXCARBAZEPINE
     Indication: Psychiatric care
     Dosage: 300 MILLIGRAM, BID
  9. FLUOXETINE [Suspect]
     Active Substance: FLUOXETINE HYDROCHLORIDE
     Indication: Psychiatric care
     Dosage: 30 MILLIGRAM, QD
  10. MELATONIN [Suspect]
     Active Substance: MELATONIN
     Indication: Psychiatric care
     Dosage: 5 MILLIGRAM, QD
  11. VALPROIC ACID [Interacting]
     Active Substance: VALPROIC ACID
     Indication: Psychiatric care
     Dosage: 500 MILLIGRAM, BID
  12. DEXMEDETOMIDINE [Concomitant]
     Active Substance: DEXMEDETOMIDINE
     Indication: Agitation
     Dosage: UNK

REACTIONS (8)
  - Drug ineffective [Unknown]
  - Sinus tachycardia [Recovering/Resolving]
  - Ejection fraction decreased [Recovering/Resolving]
  - Drug interaction [Recovering/Resolving]
  - Orthostatic hypotension [Recovering/Resolving]
  - Pericardial effusion [Recovering/Resolving]
  - Myocarditis [Recovering/Resolving]
  - Off label use [Unknown]
